FAERS Safety Report 17116912 (Version 1)
Quarter: 2019Q4

REPORT INFORMATION
  Report Type: Spontaneous
  Country: GB (occurrence: GB)
  Receive Date: 20191205
  Receipt Date: 20191205
  Transmission Date: 20200122
  Serious: Yes (Other)
  Sender: FDA-Public Use
  Company Number: GB-PFIZER INC-2019521240

PATIENT
  Age: 73 Year
  Sex: Male

DRUGS (1)
  1. VARENICLINE TARTRATE [Suspect]
     Active Substance: VARENICLINE TARTRATE
     Dosage: 500 UG, UNK
     Route: 048

REACTIONS (2)
  - Conjunctival haemorrhage [Recovered/Resolved]
  - Epistaxis [Recovered/Resolved]
